FAERS Safety Report 7216024-5 (Version None)
Quarter: 2011Q1

REPORT INFORMATION
  Report Type: 
  Country: None (occurrence: None)
  Receive Date: 20110105
  Receipt Date: 20110105
  Transmission Date: 20110831
  Serious: Yes (Other)
  Sender: FDA-Public Use
  Company Number: None

PATIENT
  Age: 37 Year
  Sex: Female
  Weight: 115.6672 kg

DRUGS (1)
  1. CLOZAPINE [Suspect]
     Dosage: 100 MG  1 1/2 TABLET QAM, 2 TABLETS HS
     Dates: start: 20070101

REACTIONS (3)
  - PSYCHOTIC DISORDER [None]
  - AGITATION [None]
  - PRODUCT SUBSTITUTION ISSUE [None]
